FAERS Safety Report 13001672 (Version 1)
Quarter: 2016Q4

REPORT INFORMATION
  Report Type: Spontaneous
  Country: US (occurrence: US)
  Receive Date: 20161205
  Receipt Date: 20161205
  Transmission Date: 20170207
  Serious: No
  Sender: FDA-Public Use
  Company Number: None

PATIENT
  Age: 51 Year
  Sex: Female

DRUGS (2)
  1. COPAXONE [Suspect]
     Active Substance: GLATIRAMER ACETATE
     Indication: MIGRAINE
     Dosage: 40MG THREE TIME
     Route: 058
     Dates: start: 20160621
  2. COPAXONE [Suspect]
     Active Substance: GLATIRAMER ACETATE
     Indication: ESSENTIAL HYPERTENSION
     Dosage: 40MG THREE TIME
     Route: 058
     Dates: start: 20160621

REACTIONS (5)
  - Injection site erythema [None]
  - Injection site rash [None]
  - Injection site warmth [None]
  - Injection site pruritus [None]
  - No reaction on previous exposure to drug [None]

NARRATIVE: CASE EVENT DATE: 20161205
